FAERS Safety Report 10350621 (Version 1)
Quarter: 2014Q3

REPORT INFORMATION
  Report Type: Spontaneous
  Country: US (occurrence: US)
  Receive Date: 20140730
  Receipt Date: 20140730
  Transmission Date: 20150326
  Serious: No
  Sender: FDA-Public Use
  Company Number: US-BRISTOL-MYERS SQUIBB COMPANY-20617171

PATIENT
  Sex: Female

DRUGS (1)
  1. FORXIGA [Suspect]
     Active Substance: DAPAGLIFLOZIN
     Indication: TYPE 2 DIABETES MELLITUS
     Dates: end: 20140404

REACTIONS (3)
  - Bacterial infection [Not Recovered/Not Resolved]
  - Dizziness [Not Recovered/Not Resolved]
  - Renal impairment [Not Recovered/Not Resolved]
